FAERS Safety Report 4472200-6 (Version None)
Quarter: 2004Q4

REPORT INFORMATION
  Report Type: 
  Country: None (occurrence: None)
  Receive Date: 20041012
  Receipt Date: 20041004
  Transmission Date: 20050328
  Serious: Yes (Disabling)
  Sender: FDA-Public Use
  Company Number: US-MERCK-0410USA00540

PATIENT
  Age: 64 Year
  Sex: Female

DRUGS (4)
  1. FOSAMAX [Concomitant]
     Route: 048
  2. LIPITOR [Concomitant]
     Route: 065
  3. PREDNISONE [Concomitant]
     Route: 065
  4. VIOXX [Suspect]
     Indication: OSTEOARTHRITIS
     Route: 048
     Dates: start: 19990501, end: 20040930

REACTIONS (1)
  - SARCOIDOSIS [None]
